FAERS Safety Report 9289343 (Version 3)
Quarter: 2013Q3

REPORT INFORMATION
  Report Type: Spontaneous
  Country: US (occurrence: US)
  Receive Date: 20130514
  Receipt Date: 20130722
  Transmission Date: 20140515
  Serious: Yes (Hospitalization, Other)
  Sender: FDA-Public Use
  Company Number: US-PFIZER INC-2013147018

PATIENT
  Age: 82 Year
  Sex: Male
  Weight: 77.1 kg

DRUGS (12)
  1. ALTACE [Suspect]
     Indication: HYPERTENSION
     Dosage: UNK
     Route: 048
     Dates: start: 2003
  2. ALTACE [Suspect]
     Dosage: 10 MG, 2X/DAY
     Route: 048
  3. SYMBICORT [Suspect]
     Indication: DYSPNOEA
     Dosage: 80/4.5 MCG, TWO PUFFS, 2X/DAY
     Route: 055
  4. SYMBICORT [Suspect]
     Indication: ASTHMA
  5. OMEPRAZOLE [Suspect]
     Indication: GASTROOESOPHAGEAL REFLUX DISEASE
     Dosage: 20 MG, DAILY
     Route: 048
  6. NASONEX [Concomitant]
     Indication: DYSPNOEA
     Dosage: UNK
  7. LIPITOR [Concomitant]
     Indication: BLOOD CHOLESTEROL
     Dosage: 20 MG, DAILY
     Dates: start: 1998
  8. FISH OIL [Concomitant]
     Dosage: UNK
     Dates: start: 1993
  9. MULTIVITAMINS [Concomitant]
  10. CARVEDILOL [Concomitant]
     Dosage: 3.125 MG, 2X/DAY
  11. PRADAXA [Concomitant]
     Indication: ANTICOAGULANT THERAPY
     Dosage: 150 MG, DAILY
  12. IBUPROFEN [Concomitant]
     Dosage: UNK

REACTIONS (13)
  - Cerebrovascular accident [Unknown]
  - Transient ischaemic attack [Unknown]
  - Cognitive disorder [Unknown]
  - Dyscalculia [Unknown]
  - Confusional state [Unknown]
  - Drug ineffective [Unknown]
  - Hypertension [Unknown]
  - Glucose tolerance impaired [Unknown]
  - Cardiac disorder [Unknown]
  - Arteriosclerosis [Unknown]
  - Drug dose omission [Unknown]
  - Visual impairment [Unknown]
  - Off label use [Unknown]
